FAERS Safety Report 24787197 (Version 2)
Quarter: 2025Q1

REPORT INFORMATION
  Report Type: Spontaneous
  Country: FR (occurrence: FR)
  Receive Date: 20241230
  Receipt Date: 20250116
  Transmission Date: 20250408
  Serious: Yes (Disabling, Other)
  Sender: GRIFOLS
  Company Number: FR-IGSA-BIG0032151

PATIENT
  Age: 31 Year
  Sex: Female

DRUGS (3)
  1. XEMBIFY [Suspect]
     Active Substance: HUMAN IMMUNOGLOBULIN G
     Indication: Chronic inflammatory demyelinating polyradiculoneuropathy
     Dosage: 30 GRAM, Q.WK.
     Route: 058
     Dates: start: 20240606, end: 20241210
  2. XEMBIFY [Suspect]
     Active Substance: HUMAN IMMUNOGLOBULIN G
     Indication: Product use in unapproved indication
     Dosage: 30 GRAM, Q.WK.
     Route: 058
     Dates: start: 20240606, end: 20241210
  3. XEMBIFY [Suspect]
     Active Substance: HUMAN IMMUNOGLOBULIN G
     Dosage: 30 GRAM, Q.WK.
     Route: 058
     Dates: start: 20240606, end: 20241210

REACTIONS (3)
  - Injection site pain [Recovered/Resolved with Sequelae]
  - Injection site necrosis [Recovered/Resolved with Sequelae]
  - Injection site fibrosis [Recovered/Resolved with Sequelae]

NARRATIVE: CASE EVENT DATE: 20240909
